FAERS Safety Report 9342710 (Version 1)
Quarter: 2013Q2

REPORT INFORMATION
  Report Type: Spontaneous
  Country: IT (occurrence: IT)
  Receive Date: 20130611
  Receipt Date: 20130611
  Transmission Date: 20140414
  Serious: Yes (Other)
  Sender: FDA-Public Use
  Company Number: IT-TEVA-410450ISR

PATIENT
  Age: 78 Year
  Sex: Male

DRUGS (2)
  1. OLANZAPINE [Suspect]
     Indication: HALLUCINATION, VISUAL
     Dosage: 5 MILLIGRAM DAILY;
     Route: 048
     Dates: start: 20130101, end: 20130523
  2. OLANZAPINE [Suspect]
     Dosage: 2.5 MILLIGRAM DAILY;
     Route: 048

REACTIONS (2)
  - Hypertonia [Recovering/Resolving]
  - Dyskinesia [Recovering/Resolving]
